FAERS Safety Report 4462222-3 (Version None)
Quarter: 2004Q3

REPORT INFORMATION
  Report Type: 
  Country: None (occurrence: None)
  Receive Date: 20040924
  Receipt Date: 20040917
  Transmission Date: 20050211
  Serious: No
  Sender: FDA-Public Use
  Company Number: 2004229162US

PATIENT
  Age: 69 Year
  Sex: Male
  Weight: 95.2 kg

DRUGS (9)
  1. CAVERJECT [Suspect]
     Dosage: SEE IMAGE
  2. GLUCOPHAGE [Concomitant]
  3. GLIPIZIDE [Concomitant]
  4. INSULIN [Concomitant]
  5. LOPRESSOR [Concomitant]
  6. ISOSORBIDE (ISOSORBIDE) [Concomitant]
  7. PREVACID [Concomitant]
  8. VALIUM [Concomitant]
  9. VIAGRA [Concomitant]

REACTIONS (3)
  - ARTERIAL OCCLUSIVE DISEASE [None]
  - DRUG INEFFECTIVE [None]
  - HEPATECTOMY [None]
